FAERS Safety Report 9396999 (Version 1)
Quarter: 2013Q3

REPORT INFORMATION
  Report Type: Spontaneous
  Country: US (occurrence: None)
  Receive Date: 20130710
  Receipt Date: 20130710
  Transmission Date: 20140515
  Serious: Yes (Other)
  Sender: FDA-Public Use
  Company Number: None

PATIENT
  Age: 54 Year
  Sex: Female
  Weight: 79 kg

DRUGS (1)
  1. CIPROFLOXACIN [Suspect]
     Indication: ABDOMINAL PAIN
     Route: 042
     Dates: start: 20130709, end: 20130709

REACTIONS (3)
  - Injection site rash [None]
  - Injection site erythema [None]
  - Injection site pain [None]
